FAERS Safety Report 21600059 (Version 1)
Quarter: 2022Q4

REPORT INFORMATION
  Report Type: Spontaneous
  Country: US (occurrence: US)
  Receive Date: 20221116
  Receipt Date: 20221116
  Transmission Date: 20230112
  Serious: No
  Sender: FDA-Public Use
  Company Number: US-BEIGENE USA INC-BGN-2022-010763

PATIENT

DRUGS (1)
  1. BRUKINSA [Suspect]
     Active Substance: ZANUBRUTINIB
     Indication: Chronic kidney disease
     Dosage: 160 MILLIGRAM, BID
     Route: 048

REACTIONS (2)
  - Red blood cell count decreased [Unknown]
  - Off label use [Unknown]
